FAERS Safety Report 7671968-5 (Version None)
Quarter: 2011Q3

REPORT INFORMATION
  Report Type: 
  Country: None (occurrence: None)
  Receive Date: 20110809
  Receipt Date: 20110727
  Transmission Date: 20111222
  Serious: Yes (Other)
  Sender: FDA-Public Use
  Company Number: JP-GLAXOSMITHKLINE-B0726790A

PATIENT
  Age: 62 Year
  Sex: Female

DRUGS (3)
  1. VALTREX [Suspect]
     Indication: PRODUCT USED FOR UNKNOWN INDICATION
     Dosage: 500MG PER DAY
     Route: 048
  2. VELCADE [Concomitant]
     Route: 042
  3. ZOMETA [Concomitant]
     Route: 042

REACTIONS (7)
  - HALLUCINATION, VISUAL [None]
  - DELIRIUM [None]
  - DISORIENTATION [None]
  - ASTHENIA [None]
  - ABASIA [None]
  - SOMNOLENCE [None]
  - DIZZINESS [None]
